FAERS Safety Report 16496004 (Version 3)
Quarter: 2021Q4

REPORT INFORMATION
  Report Type: Spontaneous
  Country: GB (occurrence: GB)
  Receive Date: 20190628
  Receipt Date: 20211201
  Transmission Date: 20220303
  Serious: Yes (Life-Threatening, Hospitalization)
  Sender: FDA-Public Use
  Company Number: None

PATIENT
  Age: 80 Year
  Sex: Female
  Weight: 68 kg

DRUGS (4)
  1. TRIMETHOPRIM [Concomitant]
     Active Substance: TRIMETHOPRIM
     Indication: Product used for unknown indication
     Dosage: UNK
     Route: 065
  2. OMEPRAZOLE [Concomitant]
     Active Substance: OMEPRAZOLE
     Indication: Product used for unknown indication
     Dosage: UNK
     Route: 065
  3. VAGIFEM [Suspect]
     Active Substance: ESTRADIOL
     Indication: Product used for unknown indication
     Dosage: 10 ?G, QW
     Route: 067
     Dates: start: 20190522
  4. VAGIFEM [Suspect]
     Active Substance: ESTRADIOL
     Dosage: 10 ?G, BIW
     Route: 067
     Dates: end: 20190530

REACTIONS (3)
  - Chest discomfort [Unknown]
  - Dyspnoea [Unknown]
  - Pulmonary embolism [Not Recovered/Not Resolved]

NARRATIVE: CASE EVENT DATE: 20190530
